FAERS Safety Report 8367001-2 (Version None)
Quarter: 2012Q2

REPORT INFORMATION
  Report Type: 
  Country: None (occurrence: None)
  Receive Date: 20120517
  Receipt Date: 20120502
  Transmission Date: 20120825
  Serious: Yes (Disabling, Other)
  Sender: FDA-Public Use
  Company Number: US-ROCHE-798499

PATIENT
  Sex: Male
  Weight: 104.3 kg

DRUGS (5)
  1. POVIDONE IODINE [Concomitant]
  2. DROXAINE [Concomitant]
  3. VELCADE [Suspect]
     Indication: MACULAR OEDEMA
     Route: 050
  4. OFLOXACIN [Concomitant]
     Route: 047
  5. PROPARACAINE HCL [Concomitant]

REACTIONS (5)
  - VISION BLURRED [None]
  - EYE PAIN [None]
  - EYE INFLAMMATION [None]
  - BLINDNESS [None]
  - MEDICATION ERROR [None]
